FAERS Safety Report 8325790-7 (Version None)
Quarter: 2012Q2

REPORT INFORMATION
  Report Type: 
  Country: None (occurrence: None)
  Receive Date: 20120501
  Receipt Date: 20120417
  Transmission Date: 20120825
  Serious: No
  Sender: FDA-Public Use
  Company Number: US-BIOGENIDEC-2012BI013400

PATIENT
  Age: 33 Year
  Sex: Female

DRUGS (2)
  1. AVONEX [Concomitant]
     Indication: MULTIPLE SCLEROSIS
     Route: 030
     Dates: start: 20080901
  2. TYSABRI [Suspect]
     Indication: MULTIPLE SCLEROSIS
     Route: 042
     Dates: start: 20120411

REACTIONS (7)
  - COUGH [None]
  - CHEST DISCOMFORT [None]
  - BRONCHITIS [None]
  - WHEEZING [None]
  - PNEUMONIA [None]
  - PRODUCTIVE COUGH [None]
  - DYSPNOEA [None]
